FAERS Safety Report 16141286 (Version 1)
Quarter: 2019Q2

REPORT INFORMATION
  Report Type: Spontaneous
  Country: US (occurrence: US)
  Receive Date: 20190331
  Receipt Date: 20190331
  Transmission Date: 20190711
  Serious: Yes (Life-Threatening, Disabling)
  Sender: FDA-Public Use
  Company Number: None

PATIENT
  Age: 32 Year
  Sex: Female
  Weight: 52.65 kg

DRUGS (12)
  1. VITAMIN D3 [Concomitant]
     Active Substance: CHOLECALCIFEROL
  2. TORODOL [Concomitant]
  3. PORT-A-CATH [Concomitant]
  4. BIOTIN [Concomitant]
     Active Substance: BIOTIN
  5. FERRLECIT [Suspect]
     Active Substance: SODIUM FERRIC GLUCONATE COMPLEX
     Indication: ANAEMIA
     Dosage: ?          QUANTITY:1 INJECTION(S);?
     Route: 042
     Dates: start: 20190223, end: 20190330
  6. MIDODRINE [Concomitant]
     Active Substance: MIDODRINE
  7. VALIUM [Concomitant]
     Active Substance: DIAZEPAM
  8. NALTREXONE [Concomitant]
     Active Substance: NALTREXONE
  9. FOLBIC [Concomitant]
     Active Substance: CYANOCOBALAMIN\FOLIC ACID\PYRIDOXINE
  10. DUEXIS [Concomitant]
     Active Substance: FAMOTIDINE\IBUPROFEN
  11. GAMMAGARD [Concomitant]
     Active Substance: HUMAN IMMUNOGLOBULIN G
  12. ZOFRAN [Concomitant]
     Active Substance: ONDANSETRON HYDROCHLORIDE

REACTIONS (5)
  - Diarrhoea [None]
  - Product supply issue [None]
  - Vomiting [None]
  - Anaphylactic reaction [None]
  - Exposure via contaminated device [None]

NARRATIVE: CASE EVENT DATE: 20190330
